FAERS Safety Report 8823805 (Version 10)
Quarter: 2016Q2

REPORT INFORMATION
  Report Type: Report from Study
  Country: CA (occurrence: CA)
  Receive Date: 20121003
  Receipt Date: 20160420
  Transmission Date: 20160815
  Serious: Yes (Hospitalization, Other)
  Sender: FDA-Public Use
  Company Number: CA-ROCHE-1112458

PATIENT
  Age: 57 Year
  Sex: Female
  Weight: 100 kg

DRUGS (14)
  1. ACTEMRA [Suspect]
     Active Substance: TOCILIZUMAB
     Indication: RHEUMATOID ARTHRITIS
     Route: 042
     Dates: start: 20110721
  2. ACTEMRA [Suspect]
     Active Substance: TOCILIZUMAB
     Route: 042
     Dates: start: 20150528
  3. ACTEMRA [Suspect]
     Active Substance: TOCILIZUMAB
     Route: 042
     Dates: start: 20111104
  4. ACTEMRA [Suspect]
     Active Substance: TOCILIZUMAB
     Route: 042
     Dates: start: 20111202
  5. VITAMIN C [Concomitant]
     Active Substance: ASCORBIC ACID
  6. PARIET [Concomitant]
     Active Substance: RABEPRAZOLE SODIUM
  7. ACTEMRA [Suspect]
     Active Substance: TOCILIZUMAB
     Route: 042
     Dates: start: 20141020, end: 20150410
  8. VOLTAREN [Concomitant]
     Active Substance: DICLOFENAC SODIUM
     Route: 065
  9. ALTACE [Concomitant]
     Active Substance: RAMIPRIL
  10. FOLIC ACID. [Concomitant]
     Active Substance: FOLIC ACID
  11. PREDNISONE. [Concomitant]
     Active Substance: PREDNISONE
  12. ACTEMRA [Suspect]
     Active Substance: TOCILIZUMAB
     Indication: RHEUMATOID ARTHRITIS
     Route: 058
     Dates: start: 20150508, end: 20150522
  13. PLAQUENIL [Concomitant]
     Active Substance: HYDROXYCHLOROQUINE SULFATE
  14. CYMBALTA [Concomitant]
     Active Substance: DULOXETINE HYDROCHLORIDE

REACTIONS (26)
  - Pain [Not Recovered/Not Resolved]
  - Nasopharyngitis [Unknown]
  - Weight decreased [Unknown]
  - Hypokinesia [Unknown]
  - Arthralgia [Recovering/Resolving]
  - Hernia [Unknown]
  - Injection site extravasation [Recovered/Resolved]
  - Herpes zoster [Recovering/Resolving]
  - Productive cough [Unknown]
  - Influenza [Not Recovered/Not Resolved]
  - Fatigue [Unknown]
  - Upper respiratory tract congestion [Unknown]
  - Infusion related reaction [Unknown]
  - Nasopharyngitis [Not Recovered/Not Resolved]
  - Drug ineffective [Unknown]
  - Dyspnoea [Unknown]
  - Wheezing [Unknown]
  - Encephalitis [Recovering/Resolving]
  - Haemoglobin decreased [Unknown]
  - Oropharyngeal pain [Unknown]
  - Meningitis [Recovering/Resolving]
  - Lower respiratory tract congestion [Unknown]
  - Malaise [Not Recovered/Not Resolved]
  - Heart rate increased [Unknown]
  - Gastrointestinal haemorrhage [Unknown]
  - Ear pain [Unknown]

NARRATIVE: CASE EVENT DATE: 201108
